FAERS Safety Report 8012072-6 (Version None)
Quarter: 2011Q4

REPORT INFORMATION
  Report Type: 
  Country: None (occurrence: None)
  Receive Date: 20111228
  Receipt Date: 20111221
  Transmission Date: 20120403
  Serious: Yes (Death, Hospitalization, Other)
  Sender: FDA-Public Use
  Company Number: US-BAXTER-2011BH039025

PATIENT
  Age: 58 Year
  Sex: Male

DRUGS (1)
  1. DIANEAL [Suspect]
     Indication: PERITONEAL DIALYSIS
     Route: 033
     Dates: end: 20111201

REACTIONS (5)
  - PERITONEAL DIALYSIS COMPLICATION [None]
  - ILEUS [None]
  - PSEUDOMONAL SEPSIS [None]
  - PLEURAL EFFUSION [None]
  - DEATH [None]
